FAERS Safety Report 5639075-0 (Version None)
Quarter: 2008Q1

REPORT INFORMATION
  Report Type: 
  Country: None (occurrence: None)
  Receive Date: 20080226
  Receipt Date: 20080218
  Transmission Date: 20080703
  Serious: Yes (Other)
  Sender: FDA-Public Use
  Company Number: PHBS2008SE02318

PATIENT
  Age: 88 Year
  Sex: Female

DRUGS (5)
  1. ZOMETA [Suspect]
     Dosage: UNK, UNK
     Route: 042
     Dates: start: 20051226, end: 20061003
  2. BONDRONAT [Suspect]
     Dosage: UNK, UNK
     Route: 065
     Dates: start: 20061004, end: 20070613
  3. ATENOLOL [Concomitant]
     Route: 065
  4. COZAAR [Concomitant]
     Route: 065
  5. FEMAR [Concomitant]
     Route: 065

REACTIONS (4)
  - BONE DISORDER [None]
  - OSTEONECROSIS [None]
  - SWELLING [None]
  - TOOTH DISORDER [None]
